FAERS Safety Report 8514369-X (Version None)
Quarter: 2012Q3

REPORT INFORMATION
  Report Type: 
  Country: None (occurrence: None)
  Receive Date: 20120717
  Receipt Date: 20120705
  Transmission Date: 20120928
  Serious: Yes (Other)
  Sender: FDA-Public Use
  Company Number: US-ELI_LILLY_AND_COMPANY-US201203009353

PATIENT
  Sex: Female

DRUGS (2)
  1. FORTEO [Suspect]
     Indication: OSTEOPOROSIS
     Dosage: 20 UG, QD
     Dates: start: 20120301, end: 20120327
  2. FORTEO [Suspect]
     Dosage: 20 UG, QD

REACTIONS (10)
  - ASTHENIA [None]
  - FEELING ABNORMAL [None]
  - DIZZINESS [None]
  - ARTHRALGIA [None]
  - SKIN CANCER [None]
  - MOTOR DYSFUNCTION [None]
  - MYALGIA [None]
  - GAIT DISTURBANCE [None]
  - INTENTIONAL DRUG MISUSE [None]
  - MOVEMENT DISORDER [None]
